FAERS Safety Report 23043379 (Version 1)
Quarter: 2023Q4

REPORT INFORMATION
  Report Type: Spontaneous
  Country: US (occurrence: US)
  Receive Date: 20231009
  Receipt Date: 20231009
  Transmission Date: 20240109
  Serious: No
  Sender: FDA-Public Use
  Company Number: US-PFIZER INC-202300318386

PATIENT
  Age: 16 Year
  Sex: Female

DRUGS (2)
  1. ENBREL [Suspect]
     Active Substance: ETANERCEPT
     Indication: Enthesopathy
     Dosage: UNK
     Route: 065
     Dates: start: 201912, end: 202002
  2. METHOTREXATE SODIUM [Suspect]
     Active Substance: METHOTREXATE SODIUM
     Indication: Enthesopathy
     Dosage: UNK
     Route: 065
     Dates: start: 202002, end: 202012

REACTIONS (1)
  - Drug ineffective [Unknown]
